FAERS Safety Report 9611453 (Version 1)
Quarter: 2013Q4

REPORT INFORMATION
  Report Type: Spontaneous
  Country: CH (occurrence: CH)
  Receive Date: 20131010
  Receipt Date: 20131010
  Transmission Date: 20140711
  Serious: Yes (Other)
  Sender: FDA-Public Use
  Company Number: CH-ASTRAZENECA-2013SE73208

PATIENT
  Age: 38 Year
  Sex: Male

DRUGS (3)
  1. ESOMEP [Suspect]
     Route: 048
  2. PROGRAF [Interacting]
     Indication: LIVER TRANSPLANT
     Route: 065
  3. NEPHROTRANS [Concomitant]

REACTIONS (3)
  - Drug interaction [Unknown]
  - Renal failure chronic [Unknown]
  - Tubulointerstitial nephritis [Unknown]
